FAERS Safety Report 4380632-X (Version None)
Quarter: 2004Q2

REPORT INFORMATION
  Report Type: 
  Country: None (occurrence: None)
  Receive Date: 20040618
  Receipt Date: 20040322
  Transmission Date: 20050107
  Serious: Yes (Hospitalization, Other)
  Sender: FDA-Public Use
  Company Number: PHNU2004DE01298

PATIENT
  Sex: Female

DRUGS (6)
  1. DIOVAN [Suspect]
     Route: 048
     Dates: start: 20020101
  2. DIOVAN [Suspect]
     Dosage: 40MG/DAY
     Route: 048
  3. ISOPTIN TAB [Concomitant]
  4. DIGITOXIN TAB [Concomitant]
  5. ISOSORBIDE DINITRATE [Concomitant]
  6. MOLSIDOMINE [Concomitant]
     Indication: CARDIAC FAILURE
     Dates: start: 20040201

REACTIONS (5)
  - ARTHRALGIA [None]
  - BACK PAIN [None]
  - CARDIAC FAILURE [None]
  - DYSPNOEA EXERTIONAL [None]
  - SHOCK [None]
